FAERS Safety Report 15739523 (Version 1)
Quarter: 2018Q4

REPORT INFORMATION
  Report Type: Spontaneous
  Country: US (occurrence: US)
  Receive Date: 20181219
  Receipt Date: 20181219
  Transmission Date: 20190205
  Serious: No
  Sender: FDA-Public Use
  Company Number: US-HORIZON-DUE-PEN-0716-2018

PATIENT
  Age: 41 Year
  Sex: Male

DRUGS (3)
  1. PENNSAID [Suspect]
     Active Substance: DICLOFENAC SODIUM
     Indication: ARTHRALGIA
  2. DUEXIS [Suspect]
     Active Substance: FAMOTIDINE\IBUPROFEN
     Indication: PRODUCT USED FOR UNKNOWN INDICATION
     Dosage: PRN
  3. VITAMINS [Concomitant]
     Active Substance: VITAMINS

REACTIONS (4)
  - Urticaria [Unknown]
  - Application site pruritus [Not Recovered/Not Resolved]
  - Pruritus [Not Recovered/Not Resolved]
  - Off label use [Unknown]

NARRATIVE: CASE EVENT DATE: 2018
